FAERS Safety Report 16362707 (Version 5)
Quarter: 2019Q3

REPORT INFORMATION
  Report Type: Spontaneous
  Country: DK (occurrence: DK)
  Receive Date: 20190528
  Receipt Date: 20190910
  Transmission Date: 20191004
  Serious: Yes (Death, Life-Threatening, Hospitalization, Other)
  Sender: FDA-Public Use
  Company Number: NO-MALLINCKRODT-T201803397

PATIENT
  Age: 30 Year
  Sex: Male

DRUGS (3)
  1. PARACETAMOL [Suspect]
     Active Substance: ACETAMINOPHEN
     Indication: ANALGESIC THERAPY
     Dosage: 1 G (5 DOSAGE FORM), UNK
     Route: 048
  2. OFIRMEV [Suspect]
     Active Substance: ACETAMINOPHEN
     Indication: ANALGESIC THERAPY
     Dosage: 1 G (5 DOSAGE FORM), UNK
     Route: 042
  3. PARACETAMOL CODEINE [Suspect]
     Active Substance: ACETAMINOPHEN\CODEINE PHOSPHATE
     Indication: ANALGESIC THERAPY
     Dosage: 14.5 G (9 DOSAGE FORM OF 0.5 G WITH 30 MG CODEINE), UNK
     Route: 065

REACTIONS (4)
  - Acute hepatic failure [Fatal]
  - Respiratory failure [Fatal]
  - Circulatory collapse [Fatal]
  - Toxicity to various agents [Fatal]
